FAERS Safety Report 9348699 (Version 1)
Quarter: 2013Q2

REPORT INFORMATION
  Report Type: Spontaneous
  Country: US (occurrence: US)
  Receive Date: 20130614
  Receipt Date: 20130614
  Transmission Date: 20140414
  Serious: Yes (Other)
  Sender: FDA-Public Use
  Company Number: US-BAYER-2013-071603

PATIENT
  Age: 40 Year
  Sex: Female
  Weight: 98.41 kg

DRUGS (2)
  1. YAZ [Suspect]
     Indication: PREMENSTRUAL DYSPHORIC DISORDER
  2. MOTRIN [Concomitant]
     Dosage: UNK
     Route: 048
     Dates: start: 20090705

REACTIONS (1)
  - Thrombophlebitis superficial [None]
